FAERS Safety Report 21608493 (Version 1)
Quarter: 2022Q4

REPORT INFORMATION
  Report Type: Spontaneous
  Country: US (occurrence: None)
  Receive Date: 20221116
  Receipt Date: 20221116
  Transmission Date: 20230112
  Serious: Yes (Other)
  Sender: FDA-Public Use
  Company Number: None

PATIENT
  Age: 43 Year
  Sex: Female
  Weight: 63 kg

DRUGS (6)
  1. HYDROQUINONE\NIACINAMIDE [Suspect]
     Active Substance: HYDROQUINONE\NIACINAMIDE
     Indication: Skin hyperpigmentation
     Dosage: FREQUENCY : DAILY;?
     Route: 061
     Dates: start: 20221115, end: 20221115
  2. DEXILANT [Concomitant]
     Active Substance: DEXLANSOPRAZOLE
  3. FLECTOR [Concomitant]
     Active Substance: DICLOFENAC EPOLAMINE
  4. VITAMINS [Concomitant]
     Active Substance: VITAMINS
  5. BIOTIN [Concomitant]
     Active Substance: BIOTIN
  6. DIETARY SUPPLEMENT [Concomitant]
     Active Substance: DIETARY SUPPLEMENT

REACTIONS (8)
  - Pruritus [None]
  - Paraesthesia [None]
  - Skin burning sensation [None]
  - Skin haemorrhage [None]
  - Haemorrhage [None]
  - Vulvovaginal swelling [None]
  - Lymphadenopathy [None]
  - Chemical burn [None]

NARRATIVE: CASE EVENT DATE: 20221115
